FAERS Safety Report 19596697 (Version 1)
Quarter: 2021Q3

REPORT INFORMATION
  Report Type: Spontaneous
  Country: CN (occurrence: CN)
  Receive Date: 20210722
  Receipt Date: 20210722
  Transmission Date: 20211014
  Serious: Yes (Hospitalization)
  Sender: FDA-Public Use
  Company Number: CN-PFIZER INC-202100910110

PATIENT
  Age: 70 Year
  Sex: Male

DRUGS (12)
  1. SPIRONOLACTONE. [Concomitant]
     Active Substance: SPIRONOLACTONE
     Indication: POLYURIA
     Dosage: 20 MG, 1X/DAY
     Route: 048
     Dates: start: 20210614, end: 20210624
  2. ATORVASTATIN CALCIUM. [Concomitant]
     Active Substance: ATORVASTATIN CALCIUM
     Indication: LIPIDS INCREASED
     Dosage: 20 MG, 1X/DAY
     Route: 048
     Dates: start: 20210602, end: 20210708
  3. MEPEM [Suspect]
     Active Substance: MEROPENEM
     Indication: PNEUMONIA
     Dosage: 1 G, 3X/DAY
     Dates: start: 20210621, end: 20210624
  4. ACARBOSE. [Concomitant]
     Active Substance: ACARBOSE
     Indication: BLOOD GLUCOSE INCREASED
     Dosage: 50 MG, 3X/DAY
     Dates: start: 20210603, end: 20210623
  5. BUTYLPHTHALIDE AND SODIUM CHLORIDE [Suspect]
     Active Substance: BUTYLPHTHALIDE
     Indication: CARDIOVASCULAR DISORDER
     Dosage: 25 MG, 2X/DAY
     Route: 042
     Dates: start: 20210617, end: 20210704
  6. FUROSEMIDE. [Concomitant]
     Active Substance: FUROSEMIDE
     Indication: POLYURIA
     Dosage: 20 MG, 2X/DAY
     Route: 048
     Dates: start: 20210614, end: 20210624
  7. NITROFURANTOIN. [Concomitant]
     Active Substance: NITROFURANTOIN
     Indication: URINARY TRACT INFECTION
     Dosage: 100 MG, 3X/DAY
     Dates: start: 20210614, end: 20210624
  8. TEPRENONE [Concomitant]
     Active Substance: TEPRENONE
     Indication: PLATELET AGGREGATION ABNORMAL
     Dosage: 60 MG, 2X/DAY
     Route: 048
     Dates: start: 20210602, end: 20210708
  9. OLANZAPINE. [Concomitant]
     Active Substance: OLANZAPINE
     Indication: SEDATION
     Dosage: 2.5 MG, 1X/DAY
     Route: 048
     Dates: start: 20210602, end: 20210624
  10. LERCANIDIPINE [Concomitant]
     Active Substance: LERCANIDIPINE
     Indication: HYPOTENSION
     Dosage: 10 MG, 1X/DAY
     Route: 048
     Dates: start: 20210602, end: 20210624
  11. MEMANTINE HYDROCHLORIDE. [Concomitant]
     Active Substance: MEMANTINE HYDROCHLORIDE
     Indication: DEMENTIA
     Dosage: 10 MG, 2X/DAY
     Route: 048
     Dates: start: 20210602, end: 20210624
  12. OMEPRAZOLE AND SODIUM BICARBONATE [Concomitant]
     Active Substance: OMEPRAZOLE\SODIUM BICARBONATE
     Indication: DYSPEPSIA
     Dosage: 1, 1X/DAY
     Route: 048
     Dates: start: 20210607, end: 20210623

REACTIONS (1)
  - Respiratory depression [Not Recovered/Not Resolved]

NARRATIVE: CASE EVENT DATE: 20210622
